FAERS Safety Report 6075601-8 (Version None)
Quarter: 2009Q1

REPORT INFORMATION
  Report Type: 
  Country: None (occurrence: None)
  Receive Date: 20090210
  Receipt Date: 20090210
  Transmission Date: 20090719
  Serious: Yes (Hospitalization)
  Sender: FDA-Public Use
  Company Number: None

PATIENT
  Sex: Male
  Weight: 118 kg

DRUGS (1)
  1. ERBITUX [Suspect]
     Dosage: 167 MG

REACTIONS (1)
  - ANAPHYLACTIC REACTION [None]
